FAERS Safety Report 9849658 (Version 1)
Quarter: 2013Q4

REPORT INFORMATION
  Report Type: Spontaneous
  Country: US (occurrence: None)
  Receive Date: 20131226
  Receipt Date: 20131226
  Transmission Date: 20140711
  Serious: Yes (Hospitalization)
  Sender: FDA-Public Use
  Company Number: PHEH2012US019152

PATIENT
  Age: 56 Year
  Sex: Male

DRUGS (7)
  1. AFINITOR (RAD) TABLET, 10MG [Suspect]
     Dosage: 10 MG, DAILY , ORAL
     Route: 048
  2. CELEBREX (CELECOXIB) [Concomitant]
  3. ALBUTEROL (SALBUTAMOL) [Concomitant]
  4. MUCOMYST (ACETYLCYSTEINE SODIUM) [Concomitant]
  5. ZOFRAN (ONDANSETRON HYDROCHLORIDE) [Concomitant]
  6. OXYCODONE (OXYCODONE) [Concomitant]
  7. PRILOSEC (OMEPRAZOLE) [Concomitant]

REACTIONS (1)
  - Pneumonia [None]
